FAERS Safety Report 12350522 (Version 1)
Quarter: 2016Q2

REPORT INFORMATION
  Report Type: Spontaneous
  Country: US (occurrence: None)
  Receive Date: 20160509
  Receipt Date: 20160509
  Transmission Date: 20160815
  Serious: Yes (Hospitalization)
  Sender: FDA-Public Use
  Company Number: None

PATIENT
  Age: 58 Year
  Sex: Male
  Weight: 84.8 kg

DRUGS (1)
  1. ADALIMUMAB [Suspect]
     Active Substance: ADALIMUMAB
     Indication: PSORIASIS
     Dosage: ML SC
     Route: 058
     Dates: start: 20110501, end: 20160502

REACTIONS (4)
  - Multiple sclerosis [None]
  - Cerebrovascular accident [None]
  - Neuropathy peripheral [None]
  - Demyelination [None]

NARRATIVE: CASE EVENT DATE: 20160502
